FAERS Safety Report 10105355 (Version 2)
Quarter: 2014Q2

REPORT INFORMATION
  Report Type: Other
  Country: None (occurrence: US)
  Receive Date: 20140424
  Receipt Date: 20140613
  Transmission Date: 20141212
  Serious: Yes (Hospitalization, Other)
  Sender: FDA-Public Use
  Company Number: US-GSKPPD-2014GSK001124

PATIENT
  Age: 62 Year
  Sex: Male

DRUGS (7)
  1. AVANDIA [Suspect]
     Indication: DIABETES MELLITUS
     Route: 048
     Dates: start: 200609, end: 200805
  2. ASPIRIN [Concomitant]
  3. PLAVIX [Concomitant]
  4. COREG CR [Concomitant]
     Route: 048
  5. DIGOXIN [Concomitant]
  6. NITROGLYCERIN [Concomitant]
     Route: 060
  7. RANEXA [Concomitant]
     Route: 048
     Dates: start: 200807

REACTIONS (3)
  - Myocardial infarction [None]
  - Coronary artery disease [Recovered/Resolved]
  - Cardiac failure [Recovered/Resolved]
